FAERS Safety Report 15285474 (Version 1)
Quarter: 2018Q3

REPORT INFORMATION
  Report Type: Spontaneous
  Country: FR (occurrence: FR)
  Receive Date: 20180816
  Receipt Date: 20180816
  Transmission Date: 20181010
  Serious: Yes (Other)
  Sender: FDA-Public Use
  Company Number: FR-MERCK KGAA-2053823

PATIENT
  Age: 32 Year
  Sex: Female
  Weight: 52 kg

DRUGS (3)
  1. NOVOTHYROX [Suspect]
     Active Substance: LEVOTHYROXINE SODIUM
     Indication: BASEDOW^S DISEASE
  2. THYROZOL [Suspect]
     Active Substance: METHIMAZOLE
  3. KARDEGIC [Suspect]
     Active Substance: ASPIRIN DL-LYSINE

REACTIONS (4)
  - Exposure via father [Recovered/Resolved]
  - Miscarriage of partner [Recovered/Resolved]
  - Miscarriage of partner [Recovered/Resolved]
  - Exposure via father [Recovered/Resolved]

NARRATIVE: CASE EVENT DATE: 20180124
